FAERS Safety Report 13878054 (Version 2)
Quarter: 2017Q4

REPORT INFORMATION
  Report Type: Spontaneous
  Country: US (occurrence: US)
  Receive Date: 20170817
  Receipt Date: 20171121
  Transmission Date: 20180320
  Serious: Yes (Other)
  Sender: FDA-Public Use
  Company Number: US-PERRIGO-17US025729

PATIENT
  Age: 65 Year
  Sex: Female
  Weight: 87.75 kg

DRUGS (7)
  1. TRAMADOL. [Concomitant]
     Active Substance: TRAMADOL
     Indication: BACK DISORDER
     Dosage: UNK
     Route: 048
  2. METFORMIN [Concomitant]
     Active Substance: METFORMIN HYDROCHLORIDE
     Indication: DIABETES MELLITUS
     Dosage: UNK
     Route: 048
  3. GLIMEPIRIDE. [Concomitant]
     Active Substance: GLIMEPIRIDE
     Indication: DIABETES MELLITUS
     Dosage: UNK
     Route: 048
     Dates: start: 20170701
  4. CLORAZEPATE [Concomitant]
     Active Substance: CLORAZEPATE DIPOTASSIUM
     Indication: ANXIETY
     Dosage: UNK
     Route: 048
  5. AMITRIPTYLINE [Concomitant]
     Active Substance: AMITRIPTYLINE
     Indication: INSOMNIA
     Dosage: UNK
     Route: 048
  6. LICE SHAMPOO [Suspect]
     Active Substance: PIPERONYL BUTOXIDE\PYRETHRUM EXTRACT
     Indication: LICE INFESTATION
     Dosage: 1 APPLICATION, SINGLE
     Route: 061
     Dates: start: 20170725, end: 20170725
  7. ANTIHYPERTENSIVES [Concomitant]
     Active Substance: UNSPECIFIED INGREDIENT
     Indication: HYPERTENSION
     Dosage: UNK
     Route: 065

REACTIONS (7)
  - Blood pressure increased [Recovered/Resolved]
  - Accidental exposure to product [Recovered/Resolved]
  - Visual impairment [Recovered/Resolved]
  - Eye pain [Recovered/Resolved]
  - Chemical eye injury [Recovered/Resolved]
  - Noninfective conjunctivitis [Recovered/Resolved]
  - Photophobia [Recovered/Resolved]

NARRATIVE: CASE EVENT DATE: 20170725
